FAERS Safety Report 14330039 (Version 2)
Quarter: 2018Q1

REPORT INFORMATION
  Report Type: Spontaneous
  Country: JP (occurrence: JP)
  Receive Date: 20171227
  Receipt Date: 20180107
  Transmission Date: 20180509
  Serious: Yes (Other)
  Sender: FDA-Public Use
  Company Number: JP-TEVA-2017-JP-836092

PATIENT
  Age: 48 Year
  Sex: Male

DRUGS (4)
  1. FLUOROURACIL. [Suspect]
     Active Substance: FLUOROURACIL
     Indication: METASTASES TO LIVER
     Dosage: INITIALLY STARTED AT FULL STANDARD DOSES THEN WITH CETUXIMAB EVERY TWO WEEKS (FOLFOX)
     Route: 065
  2. FOLINIC ACID [Suspect]
     Active Substance: LEUCOVORIN
     Indication: METASTASES TO LIVER
     Dosage: INITIALLY STARTED AT FULL STANDARD DOSES THEN WITH CETUXIMAB EVERY TWO WEEKS (FOLFOX)
     Route: 065
  3. OXALIPLATIN. [Suspect]
     Active Substance: OXALIPLATIN
     Indication: METASTASES TO LIVER
     Dosage: INITIALLY STARTED AT FULL STANDARD DOSES THEN WITH CETUXIMAB EVERY TWO WEEKS (FOLFOX)
     Route: 065
  4. CETUXIMAB. [Suspect]
     Active Substance: CETUXIMAB
     Indication: METASTASES TO LIVER
     Dosage: WEEKLY
     Route: 065

REACTIONS (1)
  - Skin reaction [Unknown]
